FAERS Safety Report 9772511 (Version 1)
Quarter: 2013Q4

REPORT INFORMATION
  Report Type: Spontaneous
  Country: US (occurrence: None)
  Receive Date: 20131217
  Receipt Date: 20131217
  Transmission Date: 20140711
  Serious: Yes (Other)
  Sender: FDA-Public Use
  Company Number: 7200089

PATIENT
  Age: 72 Year
  Sex: Female

DRUGS (5)
  1. LEVOTHYROXINE [Suspect]
     Indication: IMMUNOMODULATORY THERAPY
  2. METHYLPREDNISOLONE (METHYLPREDNISOLONE) [Suspect]
     Indication: IMMUNOMODULATORY THERAPY
  3. HYDROXYCHLOROQUINE (HYDROXYCHLOROQUINE) [Concomitant]
  4. PREDNISOLONE (PREDNISOLONE) [Concomitant]
  5. CLOPIDOGREL (CLOPIDOGREL) [Concomitant]

REACTIONS (9)
  - Encephalopathy [None]
  - Autoimmune thyroiditis [None]
  - Sjogren^s syndrome [None]
  - Memory impairment [None]
  - Tinnitus [None]
  - Dry eye [None]
  - Dry mouth [None]
  - Headache [None]
  - Autoimmune disorder [None]
